FAERS Safety Report 16305675 (Version 2)
Quarter: 2021Q1

REPORT INFORMATION
  Report Type: Spontaneous
  Country: US (occurrence: US)
  Receive Date: 20190513
  Receipt Date: 20210302
  Transmission Date: 20210419
  Serious: Yes (Other)
  Sender: FDA-Public Use
  Company Number: US-ASTRAZENECA-2019SE63592

PATIENT
  Sex: Male
  Weight: 81.6 kg

DRUGS (62)
  1. NEXIUM 24HR [Suspect]
     Active Substance: ESOMEPRAZOLE MAGNESIUM
     Indication: GASTROOESOPHAGEAL REFLUX DISEASE
     Route: 048
     Dates: start: 2014
  2. PRILOSEC OTC [Suspect]
     Active Substance: OMEPRAZOLE MAGNESIUM
     Indication: GASTROOESOPHAGEAL REFLUX DISEASE
     Route: 048
     Dates: start: 2003, end: 2014
  3. PHOSPHORUS [Concomitant]
     Active Substance: PHOSPHORUS
     Dates: start: 2013
  4. CALCITRIOL. [Concomitant]
     Active Substance: CALCITRIOL
     Dates: start: 2013
  5. ZANTAC [Concomitant]
     Active Substance: RANITIDINE HYDROCHLORIDE
     Dates: start: 2003, end: 2007
  6. ACETAMINOPHEN. [Concomitant]
     Active Substance: ACETAMINOPHEN
     Route: 048
     Dates: start: 20160530
  7. MYCOPHENOLIC ACID. [Concomitant]
     Active Substance: MYCOPHENOLIC ACID
  8. AMOX?CLAV [Concomitant]
     Active Substance: AMOXICILLIN\CLAVULANATE POTASSIUM
  9. DIAZEPAM. [Concomitant]
     Active Substance: DIAZEPAM
  10. IBUPROFEN. [Concomitant]
     Active Substance: IBUPROFEN
  11. CODEINE [Concomitant]
     Active Substance: CODEINE
  12. PRILOSEC [Suspect]
     Active Substance: OMEPRAZOLE MAGNESIUM
     Indication: GASTROOESOPHAGEAL REFLUX DISEASE
     Route: 048
     Dates: start: 1992, end: 2013
  13. ROSUVASTATIN. [Concomitant]
     Active Substance: ROSUVASTATIN
     Indication: BLOOD CHOLESTEROL ABNORMAL
     Dates: start: 2012
  14. LISINOPRIL. [Concomitant]
     Active Substance: LISINOPRIL
     Indication: HYPERTENSION
     Dates: start: 2010, end: 2015
  15. CLOIVINE [Concomitant]
     Indication: HYPERTENSION
     Dates: start: 2017
  16. RANITIDINE. [Concomitant]
     Active Substance: RANITIDINE
     Dates: start: 20150914, end: 20151102
  17. WARFARIN [Concomitant]
     Active Substance: WARFARIN
  18. LINZESS [Concomitant]
     Active Substance: LINACLOTIDE
  19. LACTULOSE. [Concomitant]
     Active Substance: LACTULOSE
  20. QUINAPRIL. [Concomitant]
     Active Substance: QUINAPRIL
  21. CARVEDILOL. [Concomitant]
     Active Substance: CARVEDILOL
     Indication: HYPERTENSION
     Dates: start: 2016
  22. DIPHENHYDRAMINE. [Concomitant]
     Active Substance: DIPHENHYDRAMINE
  23. VITAMIN D2 [Concomitant]
     Active Substance: ERGOCALCIFEROL
  24. OZEMPEC [Concomitant]
     Indication: DIABETES MELLITUS
     Dates: start: 2020
  25. PROGRAF [Concomitant]
     Active Substance: TACROLIMUS
     Dates: start: 2013
  26. TAMSULOSIN [Concomitant]
     Active Substance: TAMSULOSIN
     Dates: start: 2013
  27. FUROSEMIDE. [Concomitant]
     Active Substance: FUROSEMIDE
     Dates: start: 2013
  28. GLIPIZIDE. [Concomitant]
     Active Substance: GLIPIZIDE
     Dates: start: 20151202
  29. BENZONATATE. [Concomitant]
     Active Substance: BENZONATATE
  30. CLONIDINE HCL [Concomitant]
     Active Substance: CLONIDINE HYDROCHLORIDE
  31. BETHANECHOL [Concomitant]
     Active Substance: BETHANECHOL
  32. CYCLOBENZAPRINE. [Concomitant]
     Active Substance: CYCLOBENZAPRINE
  33. NEXIUM [Suspect]
     Active Substance: ESOMEPRAZOLE MAGNESIUM
     Indication: GASTROOESOPHAGEAL REFLUX DISEASE
     Route: 048
     Dates: start: 2001, end: 2013
  34. PRILOSEC [Suspect]
     Active Substance: OMEPRAZOLE MAGNESIUM
     Indication: GASTROOESOPHAGEAL REFLUX DISEASE
     Dosage: GENERIC
     Route: 065
     Dates: start: 2014, end: 2015
  35. PROTONIX [Suspect]
     Active Substance: PANTOPRAZOLE SODIUM
     Indication: GASTROOESOPHAGEAL REFLUX DISEASE
     Route: 048
     Dates: start: 20151221
  36. NOVOLIN NOS [Concomitant]
     Active Substance: INSULIN HUMAN
     Indication: DIABETES MELLITUS
     Dates: start: 1990
  37. CALCIUM ACETATE. [Concomitant]
     Active Substance: CALCIUM ACETATE
  38. ERGOCALCIFEROL. [Concomitant]
     Active Substance: ERGOCALCIFEROL
  39. TRIAMCINOLONE [Concomitant]
     Active Substance: TRIAMCINOLONE
  40. AMLODIPINE BESYLATE. [Concomitant]
     Active Substance: AMLODIPINE BESYLATE
  41. TRAMADOL HCL [Concomitant]
     Active Substance: TRAMADOL HYDROCHLORIDE
  42. AMLODIPINE [Concomitant]
     Active Substance: AMLODIPINE BESYLATE
     Indication: HYPERTENSION
     Dates: start: 2015
  43. PARICALCITOL. [Concomitant]
     Active Substance: PARICALCITOL
  44. AMMONIUM LACTATE. [Concomitant]
     Active Substance: AMMONIUM LACTATE
  45. TIZANIDINE. [Concomitant]
     Active Substance: TIZANIDINE
  46. PREDNISONE. [Concomitant]
     Active Substance: PREDNISONE
  47. MYCOPHENOLIC ACID. [Concomitant]
     Active Substance: MYCOPHENOLIC ACID
  48. DAPSONE. [Concomitant]
     Active Substance: DAPSONE
  49. FLUTICASONE. [Concomitant]
     Active Substance: FLUTICASONE
  50. PREVACID [Suspect]
     Active Substance: LANSOPRAZOLE
     Indication: GASTROOESOPHAGEAL REFLUX DISEASE
     Route: 065
     Dates: start: 1997, end: 2013
  51. PROTONIX [Suspect]
     Active Substance: PANTOPRAZOLE SODIUM
     Indication: GASTROOESOPHAGEAL REFLUX DISEASE
     Route: 065
     Dates: start: 2013
  52. POTASSIUM [Concomitant]
     Active Substance: POTASSIUM
     Dates: start: 2013
  53. PEPCID [Concomitant]
     Active Substance: FAMOTIDINE
     Dates: start: 2003, end: 2007
  54. GUAIFENESIN. [Concomitant]
     Active Substance: GUAIFENESIN
     Dates: start: 20150831
  55. MAGNESIUM OXIDE. [Concomitant]
     Active Substance: MAGNESIUM OXIDE
  56. CARVEDILOL. [Concomitant]
     Active Substance: CARVEDILOL
  57. ATORVASTATIN [Concomitant]
     Active Substance: ATORVASTATIN
  58. TRAMADOL. [Concomitant]
     Active Substance: TRAMADOL
  59. CLONIDINE. [Concomitant]
     Active Substance: CLONIDINE
  60. FLUZONE [Concomitant]
     Active Substance: INFLUENZA A VIRUS A/CALIFORNIA/7/2009 X-179A (H1N1) ANTIGEN (FORMALDEHYDE INACTIVATED)\INFLUENZA A VIRUS A/VICTORIA/210/2009 X-187 (H3N2) ANTIGEN (FORMALDEHYDE INACTIVATED)\INFLUENZA B VIRUS B/BRISBANE/60/2008 ANTIGEN (FORMALDEHYDE INACTIVATED)
  61. BENZONATATE. [Concomitant]
     Active Substance: BENZONATATE
  62. PREDNISOLONE. [Concomitant]
     Active Substance: PREDNISOLONE

REACTIONS (9)
  - Renal failure [Unknown]
  - Renal tubular necrosis [Unknown]
  - Acute kidney injury [Not Recovered/Not Resolved]
  - End stage renal disease [Unknown]
  - Gastrooesophageal reflux disease [Not Recovered/Not Resolved]
  - Hyperparathyroidism secondary [Unknown]
  - Chronic kidney disease-mineral and bone disorder [Unknown]
  - Nephrogenic anaemia [Unknown]
  - Chronic kidney disease [Not Recovered/Not Resolved]
